FAERS Safety Report 5054422-9 (Version None)
Quarter: 2006Q3

REPORT INFORMATION
  Report Type: 
  Country: None (occurrence: None)
  Receive Date: 20060713
  Receipt Date: 20060704
  Transmission Date: 20061208
  Serious: Yes (Life-Threatening, Hospitalization, Other)
  Sender: FDA-Public Use
  Company Number: 2005US001667

PATIENT
  Age: 62 Year
  Sex: Male

DRUGS (25)
  1. PROGRAF [Suspect]
     Indication: PROPHYLAXIS AGAINST TRANSPLANT REJECTION
     Dosage: SEE IMAGE
     Route: 048
     Dates: start: 20050115
  2. PROGRAF [Suspect]
     Indication: PROPHYLAXIS AGAINST TRANSPLANT REJECTION
     Dosage: SEE IMAGE
     Route: 048
     Dates: start: 20050118
  3. MYCOPHENOLATE MOFETIL [Suspect]
     Indication: PROPHYLAXIS AGAINST TRANSPLANT REJECTION
     Dosage: SEE IMAGE
     Route: 048
     Dates: start: 20050112, end: 20051101
  4. MYCOPHENOLATE MOFETIL [Suspect]
     Indication: PROPHYLAXIS AGAINST TRANSPLANT REJECTION
     Dosage: SEE IMAGE
     Route: 048
     Dates: start: 20051108
  5. PREDNISONE TAB [Suspect]
     Indication: PROPHYLAXIS AGAINST TRANSPLANT REJECTION
     Dosage: SEE IMAGE
     Route: 048
     Dates: start: 20050116
  6. PREDNISONE TAB [Suspect]
     Indication: PROPHYLAXIS AGAINST TRANSPLANT REJECTION
     Dosage: SEE IMAGE
     Route: 048
     Dates: start: 20050711
  7. METHYLPREDNISOLONUM (METHYLPREDNISOLONE) [Suspect]
     Indication: PROPHYLAXIS AGAINST TRANSPLANT REJECTION
     Dosage: 100 MG, IV NOS
     Route: 042
     Dates: start: 20050111, end: 20050115
  8. THYMOGLOBULIN [Suspect]
     Indication: PROPHYLAXIS AGAINST TRANSPLANT REJECTION
     Dosage: 100 MG, UID/QD, IV NOS
     Route: 042
     Dates: start: 20050111, end: 20050115
  9. DAPSONE [Concomitant]
  10. MORPHINE [Concomitant]
  11. NYSTATIN [Concomitant]
  12. PANTOPRAZOLE SODIUM [Concomitant]
  13. INSULIN GLARGINE (INSULIN GLARGINE) [Concomitant]
  14. VALGANCICLOVIR HCL [Concomitant]
  15. NIFEDIPINE [Concomitant]
  16. DOXAZOSIN (DOXAZOSIN) [Concomitant]
  17. AVODART [Concomitant]
  18. INSULIN [Concomitant]
  19. ASPIRIN [Concomitant]
  20. LIPITOR [Concomitant]
  21. PROTONIX [Concomitant]
  22. ATENOLOL [Concomitant]
  23. VITAMIN D [Concomitant]
  24. ISOPHANE INSULIN (ISOPHANE INSULIN) [Concomitant]
  25. INSULIN [Concomitant]

REACTIONS (10)
  - APHTHOUS STOMATITIS [None]
  - BACTERIAL INFECTION [None]
  - BUNDLE BRANCH BLOCK RIGHT [None]
  - CULTURE URINE POSITIVE [None]
  - KIDNEY INFECTION [None]
  - KIDNEY TRANSPLANT REJECTION [None]
  - MYOCARDIAL INFARCTION [None]
  - NEPHRITIS INTERSTITIAL [None]
  - NEUTROPENIA [None]
  - VENTRICULAR DYSFUNCTION [None]
